FAERS Safety Report 25973339 (Version 1)
Quarter: 2025Q4

REPORT INFORMATION
  Report Type: Report from Study
  Country: EU (occurrence: EU)
  Receive Date: 20251029
  Receipt Date: 20251029
  Transmission Date: 20260118
  Serious: Yes (Other)
  Sender: TEVA
  Company Number: EU-TEVA-VS-3384605

PATIENT
  Age: 60 Year
  Sex: Female

DRUGS (4)
  1. TERIPARATIDE [Suspect]
     Active Substance: TERIPARATIDE
     Indication: Osteoporosis
     Dosage: 20 MCG/80 MCL
     Route: 065
     Dates: start: 20251016
  2. MONTELUKAST [Concomitant]
     Active Substance: MONTELUKAST
     Indication: Asthma
     Dosage: DOSE: ONE AT NIGHT.
     Route: 065
  3. EBASTINE [Concomitant]
     Active Substance: EBASTINE
     Indication: Antiallergic therapy
     Dosage: TIME INTERVAL: AS NECESSARY
     Route: 065
  4. METHYLPREDNISOLONE [Concomitant]
     Active Substance: METHYLPREDNISOLONE
     Indication: Product used for unknown indication
     Route: 065

REACTIONS (15)
  - Headache [Not Recovered/Not Resolved]
  - Dry throat [Recovered/Resolved]
  - Eye pain [Not Recovered/Not Resolved]
  - Musculoskeletal discomfort [Not Recovered/Not Resolved]
  - Pain [Recovered/Resolved]
  - Muscle spasms [Not Recovered/Not Resolved]
  - Feeling hot [Not Recovered/Not Resolved]
  - Dry mouth [Recovered/Resolved]
  - Injection site pain [Recovered/Resolved]
  - Chest discomfort [Recovered/Resolved]
  - Chills [Recovered/Resolved]
  - Product dose omission issue [Not Recovered/Not Resolved]
  - Injection site erythema [Recovered/Resolved]
  - Nausea [Not Recovered/Not Resolved]
  - Eye irritation [Recovered/Resolved]

NARRATIVE: CASE EVENT DATE: 20251016
